FAERS Safety Report 6991984-6 (Version None)
Quarter: 2010Q3

REPORT INFORMATION
  Report Type: 
  Country: None (occurrence: None)
  Receive Date: 20100917
  Receipt Date: 20100909
  Transmission Date: 20110219
  Serious: Yes (Other)
  Sender: FDA-Public Use
  Company Number: JP-WYE-H17325110

PATIENT
  Age: 64 Year
  Sex: Female

DRUGS (3)
  1. ZOSYN [Suspect]
     Indication: PNEUMONIA
     Route: 042
     Dates: start: 20100815, end: 20100830
  2. MIGLITOL [Concomitant]
     Dosage: UNKNOWN
     Route: 048
  3. DIOVAN [Concomitant]
     Dosage: UNKNOWN
     Route: 048

REACTIONS (2)
  - HYPOKALAEMIA [None]
  - RENAL TUBULAR ACIDOSIS [None]
